FAERS Safety Report 9387395 (Version 1)
Quarter: 2013Q3

REPORT INFORMATION
  Report Type: Spontaneous
  Country: US (occurrence: US)
  Receive Date: 20130708
  Receipt Date: 20130708
  Transmission Date: 20140515
  Serious: Yes (Hospitalization, Disabling)
  Sender: FDA-Public Use
  Company Number: US-GLAXOSMITHKLINE-A1025366A

PATIENT
  Age: 47 Year
  Sex: Female

DRUGS (3)
  1. POTIGA [Suspect]
     Indication: PRODUCT USED FOR UNKNOWN INDICATION
     Dosage: 600MG PER DAY
     Route: 048
     Dates: start: 20130115
  2. LAMICTAL [Concomitant]
  3. KEPPRA [Concomitant]

REACTIONS (1)
  - Urinary retention [Recovered/Resolved]
